FAERS Safety Report 24814494 (Version 1)
Quarter: 2025Q1

REPORT INFORMATION
  Report Type: Spontaneous
  Country: US (occurrence: None)
  Receive Date: 20250106
  Receipt Date: 20250106
  Transmission Date: 20250409
  Serious: Yes (Hospitalization)
  Sender: FDA-CTU
  Company Number: None

PATIENT
  Age: 60 Year
  Sex: Female

DRUGS (8)
  1. MYFORTIC [Suspect]
     Active Substance: MYCOPHENOLATE SODIUM
     Indication: Renal transplant
     Dosage: FREQUENCY : TWICE A DAY;?
     Route: 048
     Dates: start: 20230315
  2. MAG 64 D.R. [Concomitant]
  3. DOXYCYCLINE HYCLATE [Concomitant]
     Active Substance: DOXYCYCLINE HYCLATE
  4. RETIN-A [Concomitant]
     Active Substance: TRETINOIN
  5. TACROLIMUS [Concomitant]
     Active Substance: TACROLIMUS
  6. TEMAZEPAM [Concomitant]
     Active Substance: TEMAZEPAM
  7. VASCEPA [Concomitant]
     Active Substance: ICOSAPENT ETHYL
  8. TACROLIMUS [Concomitant]
     Active Substance: TACROLIMUS

REACTIONS (1)
  - Human polyomavirus infection [None]

NARRATIVE: CASE EVENT DATE: 20241220
